FAERS Safety Report 6163261-7 (Version None)
Quarter: 2009Q2

REPORT INFORMATION
  Report Type: 
  Country: None (occurrence: None)
  Receive Date: 20090420
  Receipt Date: 20090420
  Transmission Date: 20091009
  Serious: Yes (Other)
  Sender: FDA-Public Use
  Company Number: None

PATIENT
  Age: 61 Year
  Sex: Male
  Weight: 98.9 kg

DRUGS (1)
  1. IBUPROFEN [Suspect]
     Dosage: 200 MG PO
     Route: 048
     Dates: start: 20090108, end: 20090110

REACTIONS (2)
  - ANGIOEDEMA [None]
  - SENSATION OF FOREIGN BODY [None]
